FAERS Safety Report 19040189 (Version 1)
Quarter: 2021Q1

REPORT INFORMATION
  Report Type: Spontaneous
  Country: US (occurrence: US)
  Receive Date: 20210322
  Receipt Date: 20210322
  Transmission Date: 20210420
  Serious: Yes (Other)
  Sender: FDA-Public Use
  Company Number: US-BIOHAVEN PHARMACEUTICALS-2020BHV00984

PATIENT
  Age: 45 Year
  Sex: Female
  Weight: 45.35 kg

DRUGS (5)
  1. CITALOPRAM [Concomitant]
     Active Substance: CITALOPRAM HYDROBROMIDE
  2. NURTEC ODT [Suspect]
     Active Substance: RIMEGEPANT SULFATE
     Indication: MIGRAINE
     Dosage: 75 MG, ONCE
     Route: 048
     Dates: start: 20201222, end: 20201222
  3. BOTOX [Concomitant]
     Active Substance: ONABOTULINUMTOXINA
  4. TOPAMAX [Concomitant]
     Active Substance: TOPIRAMATE
  5. NORTRIPTYLINE [Concomitant]
     Active Substance: NORTRIPTYLINE

REACTIONS (14)
  - Lip ulceration [Recovering/Resolving]
  - Headache [Recovered/Resolved]
  - Nasal mucosal blistering [Unknown]
  - Tongue ulceration [Recovering/Resolving]
  - Nasal congestion [Unknown]
  - Mouth ulceration [Recovering/Resolving]
  - Oral mucosal blistering [Unknown]
  - Pain [Unknown]
  - Arthralgia [Recovering/Resolving]
  - Gait inability [Unknown]
  - Sluggishness [Unknown]
  - Swelling [Recovering/Resolving]
  - Hypersensitivity [Recovering/Resolving]
  - Musculoskeletal stiffness [Unknown]

NARRATIVE: CASE EVENT DATE: 202012
